FAERS Safety Report 9127973 (Version 1)
Quarter: 2013Q1

REPORT INFORMATION
  Report Type: Spontaneous
  Country: US (occurrence: US)
  Receive Date: 20130228
  Receipt Date: 20130228
  Transmission Date: 20140127
  Serious: Yes (Congenital Anomaly)
  Sender: FDA-Public Use
  Company Number: US-FRI-1000042932

PATIENT
  Age: 0 Year
  Sex: Female

DRUGS (1)
  1. LEXAPRO [Suspect]
     Route: 064

REACTIONS (4)
  - Transposition of the great vessels [Unknown]
  - Atrial septal defect [Unknown]
  - Patent ductus arteriosus [Unknown]
  - Multiple congenital abnormalities [Unknown]
